FAERS Safety Report 7358136-1 (Version None)
Quarter: 2011Q1

REPORT INFORMATION
  Report Type: 
  Country: None (occurrence: None)
  Receive Date: 20110317
  Receipt Date: 20110307
  Transmission Date: 20110831
  Serious: Yes (Other)
  Sender: FDA-Public Use
  Company Number: US-SANOFI-AVENTIS-2011SA014820

PATIENT
  Age: 55 Year
  Sex: Male

DRUGS (5)
  1. METOPROLOL [Concomitant]
  2. GLIMEPIRIDE [Concomitant]
  3. PLAVIX [Suspect]
     Indication: STENT PLACEMENT
     Route: 048
     Dates: start: 20100301
  4. BENICAR HCT [Concomitant]
  5. SIMVASTATIN [Concomitant]

REACTIONS (2)
  - CORONARY ARTERY OCCLUSION [None]
  - CHEST DISCOMFORT [None]
